FAERS Safety Report 5705752-6 (Version None)
Quarter: 2008Q2

REPORT INFORMATION
  Report Type: 
  Country: None (occurrence: None)
  Receive Date: 20080415
  Receipt Date: 20080403
  Transmission Date: 20081010
  Serious: Yes (Other)
  Sender: FDA-Public Use
  Company Number: US-BAYER-200811284BCC

PATIENT
  Age: 52 Year
  Sex: Male
  Weight: 82 kg

DRUGS (2)
  1. ALEVE (CAPLET) [Suspect]
     Indication: PAIN
     Dosage: UNIT DOSE: 220 MG
     Route: 048
     Dates: start: 20070924
  2. ASPIRIN [Suspect]
     Indication: PAIN
     Route: 048
     Dates: start: 20070924

REACTIONS (2)
  - AMNESIA [None]
  - CONFUSIONAL STATE [None]
